FAERS Safety Report 17488931 (Version 2)
Quarter: 2020Q1

REPORT INFORMATION
  Report Type: Spontaneous
  Country: JP (occurrence: JP)
  Receive Date: 20200303
  Receipt Date: 20200305
  Transmission Date: 20200409
  Serious: Yes (Other)
  Sender: FDA-Public Use
  Company Number: JP-PFIZER INC-2019034317

PATIENT
  Age: 28 Year
  Sex: Female
  Weight: 62 kg

DRUGS (7)
  1. ARTIST [Suspect]
     Active Substance: CARVEDILOL
     Dosage: 1.25 MG, 1X/DAY
     Route: 048
     Dates: start: 20170816
  2. TRYPTANOL [AMITRIPTYLINE HYDROCHLORIDE] [Suspect]
     Active Substance: AMITRIPTYLINE HYDROCHLORIDE
     Dosage: 10 MG, 1X/DAY
     Route: 048
     Dates: start: 20130903
  3. ETIZOLAM [Suspect]
     Active Substance: ETIZOLAM
     Dosage: 0.5 MG, 1X/DAY
     Route: 048
     Dates: start: 20181213
  4. LOXONIN [Suspect]
     Active Substance: LOXOPROFEN SODIUM
     Dosage: 60 MG, 1X/DAY
     Route: 048
     Dates: start: 20150729
  5. ATARAX-P 25MG [Suspect]
     Active Substance: HYDROXYZINE HYDROCHLORIDE
     Dosage: 25 MG, 1X/DAY
     Route: 048
     Dates: start: 20150916
  6. DEPAKENE-R [Suspect]
     Active Substance: VALPROATE SODIUM
     Indication: MIGRAINE PROPHYLAXIS
     Dosage: 400 MG, 2X/DAY
     Route: 048
     Dates: start: 20140408
  7. ARTIST [Suspect]
     Active Substance: CARVEDILOL
     Dosage: 0.625 MG, ALTERNATE DAY
     Route: 048
     Dates: start: 20180718

REACTIONS (3)
  - Fatigue [Unknown]
  - Bradycardia [Unknown]
  - Nausea [Unknown]

NARRATIVE: CASE EVENT DATE: 201810
